FAERS Safety Report 4578532-5 (Version None)
Quarter: 2005Q1

REPORT INFORMATION
  Report Type: 
  Country: None (occurrence: None)
  Receive Date: 20050204
  Receipt Date: 20050204
  Transmission Date: 20050727
  Serious: Yes (Hospitalization)
  Sender: FDA-Public Use
  Company Number: None

PATIENT
  Sex: Female
  Weight: 85 kg

DRUGS (11)
  1. ALIMTA [Suspect]
     Indication: NON-SMALL CELL LUNG CANCER
     Dosage: 250 MG/M2   Q2WEEKS   INTRAVENOU
     Route: 042
  2. PRILOSEC [Concomitant]
  3. LIPITOR [Concomitant]
  4. TYLENOL [Concomitant]
  5. DEXAMETHASONE [Concomitant]
  6. ARANESP [Concomitant]
  7. PEGFILGRASTIM [Concomitant]
  8. ASCORBIC ACID [Concomitant]
  9. CENTRUM [Concomitant]
  10. SYNTHROID [Concomitant]
  11. GEMCITABINE [Concomitant]

REACTIONS (1)
  - RENAL IMPAIRMENT [None]
